FAERS Safety Report 6592849-4 (Version None)
Quarter: 2010Q1

REPORT INFORMATION
  Report Type: 
  Country: None (occurrence: None)
  Receive Date: 20100212
  Receipt Date: 20100126
  Transmission Date: 20100710
  Serious: Yes (Death, Hospitalization, Other)
  Sender: FDA-Public Use
  Company Number: 2010SP005470

PATIENT
  Age: 50 Year
  Sex: Female

DRUGS (5)
  1. DEXAMETHASONE [Suspect]
     Indication: OEDEMA
     Dosage: 16 MG;QD;PO
     Route: 048
  2. STREPTOMYCIN [Concomitant]
  3. ISONIAZID [Concomitant]
  4. RIFAMPIN [Concomitant]
  5. PYRAZINAMIDE [Concomitant]

REACTIONS (5)
  - GENERAL PHYSICAL HEALTH DETERIORATION [None]
  - LUNG ADENOCARCINOMA METASTATIC [None]
  - METASTASES TO CENTRAL NERVOUS SYSTEM [None]
  - SOMNOLENCE [None]
  - UNRESPONSIVE TO STIMULI [None]
